FAERS Safety Report 6999966-5 (Version None)
Quarter: 2010Q3

REPORT INFORMATION
  Report Type: 
  Country: None (occurrence: None)
  Receive Date: 20100920
  Receipt Date: 20100806
  Transmission Date: 20110219
  Serious: Yes (Life-Threatening, Other)
  Sender: FDA-Public Use
  Company Number: US-BAXTER-2010BH003598

PATIENT
  Age: 38 Year
  Sex: Female
  Weight: 86 kg

DRUGS (9)
  1. HEPARIN SODIUM INJECTION [Suspect]
     Indication: PRODUCT USED FOR UNKNOWN INDICATION
     Route: 058
     Dates: start: 20070917, end: 20070918
  2. HEPARIN SODIUM INJECTION [Suspect]
     Route: 058
     Dates: start: 20070918, end: 20070922
  3. HEPARIN SODIUM INJECTION [Suspect]
     Route: 058
     Dates: start: 20070929, end: 20071003
  4. HEPARIN SODIUM INJECTION [Suspect]
     Route: 058
     Dates: start: 20071005, end: 20071026
  5. LEXAPRO [Concomitant]
     Indication: DEPRESSION
     Route: 048
  6. KLONOPIN [Concomitant]
     Indication: PRODUCT USED FOR UNKNOWN INDICATION
     Route: 048
  7. ATENOLOL CHLORTHALIDONE ^BIOCHEMIE^ [Concomitant]
     Indication: PRODUCT USED FOR UNKNOWN INDICATION
     Route: 048
  8. VICODIN [Concomitant]
     Indication: PRODUCT USED FOR UNKNOWN INDICATION
     Route: 048
  9. CIPRO [Concomitant]
     Indication: PRODUCT USED FOR UNKNOWN INDICATION
     Route: 065

REACTIONS (16)
  - CARDIAC ARREST [None]
  - CARDIAC FAILURE CONGESTIVE [None]
  - CARDIOMEGALY [None]
  - CARDIOVASCULAR DISORDER [None]
  - CIRCULATORY COLLAPSE [None]
  - HYPOTENSION [None]
  - INJECTION SITE HAEMATOMA [None]
  - INJECTION SITE SWELLING [None]
  - OEDEMA PERIPHERAL [None]
  - PHARYNGEAL OEDEMA [None]
  - PULMONARY OEDEMA [None]
  - RESPIRATORY ARREST [None]
  - RHABDOMYOLYSIS [None]
  - SICK SINUS SYNDROME [None]
  - SYNCOPE [None]
  - WEANING FAILURE [None]
